FAERS Safety Report 4957922-2 (Version None)
Quarter: 2006Q1

REPORT INFORMATION
  Report Type: 
  Country: None (occurrence: None)
  Receive Date: 20060330
  Receipt Date: 20060320
  Transmission Date: 20060701
  Serious: Yes (Hospitalization)
  Sender: FDA-Public Use
  Company Number: FR-AMGEN-UK173143

PATIENT
  Age: 51 Year
  Sex: Female
  Weight: 97 kg

DRUGS (9)
  1. KEPIVANCE [Suspect]
     Indication: PERIPHERAL BLOOD STEM CELL APHERESIS
     Route: 042
     Dates: start: 20060128, end: 20060205
  2. VELCADE [Concomitant]
     Route: 042
     Dates: start: 20060128, end: 20060207
  3. VFEND [Concomitant]
     Route: 048
     Dates: start: 20060118, end: 20060128
  4. GELOX [Concomitant]
     Route: 048
     Dates: start: 20060128
  5. FUNGIZONE [Concomitant]
     Route: 048
     Dates: start: 20060128
  6. HEPARIN [Concomitant]
     Route: 065
     Dates: start: 20060131
  7. RANIPLEX [Concomitant]
     Route: 065
     Dates: start: 20060131
  8. ACYCLOVIR [Concomitant]
     Route: 042
     Dates: start: 20060118, end: 20060131
  9. ALKERAN [Concomitant]
     Route: 042
     Dates: start: 20060201, end: 20060201

REACTIONS (11)
  - BACK PAIN [None]
  - DYSGEUSIA [None]
  - HEADACHE [None]
  - OEDEMA [None]
  - OEDEMA MUCOSAL [None]
  - PRURITUS [None]
  - RASH PAPULAR [None]
  - SKIN DISCOLOURATION [None]
  - STOMATITIS [None]
  - TONGUE DISCOLOURATION [None]
  - TONGUE DISORDER [None]
